FAERS Safety Report 22008958 (Version 5)
Quarter: 2024Q4

REPORT INFORMATION
  Report Type: Spontaneous
  Country: AU (occurrence: AU)
  Receive Date: 20230220
  Receipt Date: 20241207
  Transmission Date: 20250115
  Serious: Yes (Other)
  Sender: ABBVIE
  Company Number: AU-JNJFOC-20230235311

PATIENT
  Age: 62 Year
  Sex: Male
  Weight: 72 kg

DRUGS (30)
  1. IMBRUVICA [Suspect]
     Active Substance: IBRUTINIB
     Indication: Mantle cell lymphoma
     Route: 048
     Dates: start: 20210120, end: 20210728
  2. VINCRISTINE [Suspect]
     Active Substance: VINCRISTINE
     Indication: Mantle cell lymphoma
     Dosage: AS A PART OF RCHOP REGIMEN
     Route: 065
     Dates: start: 20180907, end: 20181230
  3. DOXORUBICIN HYDROCHLORIDE [Suspect]
     Active Substance: DOXORUBICIN HYDROCHLORIDE
     Indication: Mantle cell lymphoma
     Dosage: AS A PART OF RCHOP REGIMEN
     Route: 065
     Dates: start: 2018
  4. PREDNISONE [Suspect]
     Active Substance: PREDNISONE
     Indication: Mantle cell lymphoma
     Dosage: AS A PART OF RCHOP REGIMEN
     Route: 065
     Dates: start: 20180907, end: 20181230
  5. RITUXIMAB [Suspect]
     Active Substance: RITUXIMAB
     Indication: Mantle cell lymphoma
     Dosage: AS A PART OF RDHAOX/RCHOP REGIMEN
     Route: 065
     Dates: start: 20180907, end: 20181230
  6. RITUXIMAB [Suspect]
     Active Substance: RITUXIMAB
     Indication: Mantle cell lymphoma
     Dosage: AS A PART OF RBAC REGIMEN
     Route: 065
     Dates: start: 20210809, end: 20211015
  7. RITUXIMAB [Suspect]
     Active Substance: RITUXIMAB
     Indication: Mantle cell lymphoma
     Dosage: AS A PART OF RBAC REGIMEN
     Route: 065
     Dates: start: 202107
  8. CARMUSTINE [Suspect]
     Active Substance: CARMUSTINE
     Indication: Mantle cell lymphoma
     Dosage: AS A PART OF BEAM AUTO REGIMEN
     Route: 065
     Dates: start: 20190201, end: 20190201
  9. CARMUSTINE [Suspect]
     Active Substance: CARMUSTINE
     Indication: Mantle cell lymphoma
     Dosage: AS A PART OF BEAM AUTO REGIMEN
     Route: 065
     Dates: start: 2018
  10. DOXORUBICIN HYDROCHLORIDE [Suspect]
     Active Substance: DOXORUBICIN HYDROCHLORIDE
     Indication: Mantle cell lymphoma
     Dosage: AS A PART OF RCHOP REGIMEN
     Route: 065
     Dates: start: 20180907, end: 20181230
  11. DEXAMETHASONE [Suspect]
     Active Substance: DEXAMETHASONE
     Indication: Mantle cell lymphoma
     Dosage: AS A PART OF RDHAOX REGIMEN
     Route: 065
     Dates: start: 2018
  12. OXALIPLATIN [Suspect]
     Active Substance: OXALIPLATIN
     Indication: Mantle cell lymphoma
     Dosage: AS A PART OF RDHAOX REGIMEN
     Route: 065
     Dates: start: 2018
  13. CYTARABINE [Suspect]
     Active Substance: CYTARABINE
     Indication: Mantle cell lymphoma
     Dosage: AS A PART OF RDHAOX REGIMEN
     Route: 065
     Dates: start: 20180907, end: 20181230
  14. CYTARABINE [Suspect]
     Active Substance: CYTARABINE
     Indication: Mantle cell lymphoma
     Dosage: AS A PART OF RBAC REGIMEN
     Route: 065
     Dates: start: 20190201, end: 20190201
  15. CYTARABINE [Suspect]
     Active Substance: CYTARABINE
     Indication: Mantle cell lymphoma
     Dosage: AS A PART OF BEAM AUTO REGIMEN
     Route: 065
     Dates: start: 20210809, end: 20211015
  16. BENDAMUSTINE [Suspect]
     Active Substance: BENDAMUSTINE
     Indication: Mantle cell lymphoma
     Dosage: AS A PART OF RBAC REGIMEN
     Route: 065
     Dates: start: 20210809, end: 20211015
  17. BENDAMUSTINE [Suspect]
     Active Substance: BENDAMUSTINE
     Indication: Mantle cell lymphoma
     Dosage: AS A PART OF RBAC REGIMEN
     Route: 065
     Dates: start: 202107
  18. CYCLOPHOSPHAMIDE [Suspect]
     Active Substance: CYCLOPHOSPHAMIDE
     Indication: Mantle cell lymphoma
     Dosage: AS A PART OF RCHOP REGIMEN
     Route: 065
     Dates: start: 20180907, end: 20181230
  19. ETOPOSIDE [Suspect]
     Active Substance: ETOPOSIDE
     Indication: Mantle cell lymphoma
     Dosage: AS A PART OF BEAM AUTO REGIMEN
     Route: 065
     Dates: start: 20190201, end: 20190201
  20. ETOPOSIDE [Suspect]
     Active Substance: ETOPOSIDE
     Indication: Mantle cell lymphoma
     Dosage: AS A PART OF BEAM AUTO REGIMEN
     Route: 065
     Dates: start: 2018
  21. MELPHALAN [Suspect]
     Active Substance: MELPHALAN
     Indication: Mantle cell lymphoma
     Dosage: AS A PART OF BEAM AUTO REGIMEN
     Route: 065
     Dates: start: 20190201
  22. MELPHALAN [Suspect]
     Active Substance: MELPHALAN
     Indication: Mantle cell lymphoma
     Dosage: AS A PART OF BEAM AUTO REGIMEN
     Route: 065
     Dates: start: 2018
  23. MAGNESIUM ASPARTATE [Concomitant]
     Active Substance: MAGNESIUM ASPARTATE
     Indication: Product used for unknown indication
  24. SULFAMETHOXAZOLE\TRIMETHOPRIM [Concomitant]
     Active Substance: SULFAMETHOXAZOLE\TRIMETHOPRIM
     Indication: Product used for unknown indication
  25. CALCIUM;CALCIUM CARBONATE;COLECALCIFEROL [Concomitant]
     Indication: Product used for unknown indication
  26. VALACYCLOVIR [Concomitant]
     Active Substance: VALACYCLOVIR HYDROCHLORIDE
     Indication: Product used for unknown indication
  27. CALCIUM CARBONATE [Concomitant]
     Active Substance: CALCIUM CARBONATE
     Indication: Product used for unknown indication
  28. ZANUBRUTINIB [Suspect]
     Active Substance: ZANUBRUTINIB
     Indication: Mantle cell lymphoma
     Route: 065
     Dates: start: 20230131
  29. FOLIC ACID [Concomitant]
     Active Substance: FOLIC ACID
     Indication: Product used for unknown indication
  30. VALACYCLOVIR [Concomitant]
     Active Substance: VALACYCLOVIR HYDROCHLORIDE
     Indication: Product used for unknown indication

REACTIONS (4)
  - Pancytopenia [Not Recovered/Not Resolved]
  - Mantle cell lymphoma recurrent [Unknown]
  - Mantle cell lymphoma [Unknown]
  - Polychromasia [Unknown]

NARRATIVE: CASE EVENT DATE: 20230101
